FAERS Safety Report 21715031 (Version 1)
Quarter: 2022Q4

REPORT INFORMATION
  Report Type: Spontaneous
  Country: US (occurrence: None)
  Receive Date: 20221209
  Receipt Date: 20221209
  Transmission Date: 20230113
  Serious: No
  Sender: FDA-Public Use
  Company Number: None

PATIENT
  Age: 69 Year
  Sex: Female
  Weight: 73.48 kg

DRUGS (21)
  1. CAPECITABINE [Suspect]
     Active Substance: CAPECITABINE
     Indication: Pancreatic carcinoma
     Dosage: FREQUENCY : TWICE A DAY;?
     Route: 048
  2. ALBUTEROL SULFATE [Concomitant]
  3. ATENOLOL [Concomitant]
  4. ASPIRIN [Concomitant]
  5. SENNA [Concomitant]
  6. VITAMIN D3 [Concomitant]
  7. FAMOTIDINE [Concomitant]
  8. FLUTICASONE [Concomitant]
  9. GABAPENTIN [Concomitant]
  10. KLOR-CON [Concomitant]
  11. LEVOTHYROXINE [Concomitant]
  12. LORAZEPAM [Concomitant]
  13. MIRALAX [Concomitant]
  14. OXYCODONE [Concomitant]
  15. PANTOPRAZOLE [Concomitant]
  16. REGLAN [Concomitant]
  17. SIMVASTATIN [Concomitant]
  18. TRELEGY [Concomitant]
  19. VITAMIN B-12 [Concomitant]
  20. XTAMPZA ER [Concomitant]
  21. ZOFRAN [Concomitant]

REACTIONS (1)
  - Hospice care [None]
